FAERS Safety Report 24026823 (Version 2)
Quarter: 2024Q2

REPORT INFORMATION
  Report Type: Report from Study
  Country: US (occurrence: US)
  Receive Date: 20240628
  Receipt Date: 20240628
  Transmission Date: 20240715
  Serious: No
  Sender: FDA-Public Use
  Company Number: US-ROCHE-3557541

PATIENT
  Age: 69 Year
  Sex: Female
  Weight: 86.64 kg

DRUGS (1)
  1. ALECENSA [Suspect]
     Active Substance: ALECTINIB HYDROCHLORIDE
     Indication: Lung neoplasm malignant
     Dosage: 4 150MG PILLS IN THE MORNING AND 4 150MG PILLS AT NIGHT  ?LAST DOSE TAKEN ON 02/MAY/2024
     Route: 048
     Dates: start: 2020

REACTIONS (5)
  - Dyspnoea [Not Recovered/Not Resolved]
  - Hair texture abnormal [Not Recovered/Not Resolved]
  - Weight increased [Unknown]
  - Fluid retention [Not Recovered/Not Resolved]
  - Brain fog [Not Recovered/Not Resolved]
